FAERS Safety Report 9830228 (Version 1)
Quarter: 2014Q1

REPORT INFORMATION
  Report Type: Other
  Country: ES (occurrence: ES)
  Receive Date: 20140120
  Receipt Date: 20140120
  Transmission Date: 20141002
  Serious: Yes (Death, Other)
  Sender: FDA-Public Use
  Company Number: DE-ACTELION-A-US2014-93712

PATIENT
  Sex: Male

DRUGS (4)
  1. VENTAVIS BAYER SCHERING [Suspect]
     Indication: PULMONARY HYPERTENSION
     Route: 045
  2. TRACLEER [Suspect]
     Indication: PULMONARY HYPERTENSION
     Route: 048
  3. SILDENAFIL [Concomitant]
  4. TREPROSTINIL [Concomitant]

REACTIONS (3)
  - Chronic respiratory failure [Fatal]
  - Sepsis [Unknown]
  - Off label use [Unknown]
